FAERS Safety Report 19103767 (Version 1)
Quarter: 2021Q2

REPORT INFORMATION
  Report Type: Report from Study
  Country: PK (occurrence: PK)
  Receive Date: 20210407
  Receipt Date: 20210407
  Transmission Date: 20210717
  Serious: Yes (Death)
  Sender: FDA-Public Use
  Company Number: NVSC2021PK078724

PATIENT
  Age: 18 Year
  Sex: Male
  Weight: 38 kg

DRUGS (1)
  1. TASIGNA [Suspect]
     Active Substance: NILOTINIB
     Indication: CHRONIC MYELOID LEUKAEMIA
     Dosage: 200 MG, BID (2+0+2)
     Route: 048
     Dates: start: 20160308

REACTIONS (1)
  - Death [Fatal]

NARRATIVE: CASE EVENT DATE: 20181002
